FAERS Safety Report 22129685 (Version 1)
Quarter: 2023Q1

REPORT INFORMATION
  Report Type: Spontaneous
  Country: US (occurrence: US)
  Receive Date: 20230323
  Receipt Date: 20230323
  Transmission Date: 20230417
  Serious: No
  Sender: FDA-Public Use
  Company Number: US-GLAXOSMITHKLINE-US2023AMR042628

PATIENT
  Sex: Male

DRUGS (2)
  1. BENLYSTA [Interacting]
     Active Substance: BELIMUMAB
     Indication: Lupus nephritis
     Dosage: UNK
  2. VOCLOSPORIN [Interacting]
     Active Substance: VOCLOSPORIN
     Indication: Lupus nephritis
     Dosage: UNK

REACTIONS (2)
  - Proteinuria [Unknown]
  - Drug interaction [Unknown]
